FAERS Safety Report 23710562 (Version 1)
Quarter: 2024Q2

REPORT INFORMATION
  Report Type: Spontaneous
  Country: US (occurrence: US)
  Receive Date: 20240405
  Receipt Date: 20240405
  Transmission Date: 20240716
  Serious: No
  Sender: FDA-Public Use
  Company Number: US-MELINTA THERAPEUTICS, LLC-US-MLNT-24-00003

PATIENT
  Age: 34 Year
  Sex: Male

DRUGS (2)
  1. KIMYRSA [Suspect]
     Active Substance: ORITAVANCIN DIPHOSPHATE
     Indication: Intervertebral discitis
     Dosage: UNK
     Route: 041
  2. KIMYRSA [Suspect]
     Active Substance: ORITAVANCIN DIPHOSPHATE
     Dosage: 1200 MILLIGRAM, SINGLE
     Route: 041

REACTIONS (7)
  - Blood pressure increased [Unknown]
  - Pain [Unknown]
  - Infusion related reaction [Unknown]
  - Tremor [Unknown]
  - Erythema [Unknown]
  - Off label use [Unknown]
  - Multiple use of single-use product [Unknown]
